FAERS Safety Report 8789949 (Version 3)
Quarter: 2013Q1

REPORT INFORMATION
  Report Type: Spontaneous
  Country: US (occurrence: US)
  Receive Date: 20120917
  Receipt Date: 20130131
  Transmission Date: 20140127
  Serious: Yes (Disabling)
  Sender: FDA-Public Use
  Company Number: US-009507513-1209USA001635

PATIENT
  Age: 21 None
  Sex: Female
  Weight: 68.27 kg

DRUGS (1)
  1. IMPLANON [Suspect]
     Indication: CONTRACEPTION
     Dosage: UNK
     Dates: start: 20110921, end: 20120820

REACTIONS (6)
  - Pain in extremity [Not Recovered/Not Resolved]
  - Metrorrhagia [Unknown]
  - Blister [Recovered/Resolved]
  - Limb discomfort [Not Recovered/Not Resolved]
  - Maternal exposure before pregnancy [Unknown]
  - Hypoaesthesia [Unknown]
